FAERS Safety Report 9675891 (Version 2)
Quarter: 2013Q4

REPORT INFORMATION
  Report Type: Spontaneous
  Country: CH (occurrence: CH)
  Receive Date: 20131107
  Receipt Date: 20131115
  Transmission Date: 20140711
  Serious: Yes (Life-Threatening, Hospitalization)
  Sender: FDA-Public Use
  Company Number: CH-GLAXOSMITHKLINE-B0940173A

PATIENT
  Age: 62 Year
  Sex: Male
  Weight: 82 kg

DRUGS (7)
  1. VOTRIENT [Suspect]
     Indication: METASTATIC RENAL CELL CARCINOMA
     Dosage: 800MG PER DAY
     Route: 048
     Dates: start: 20130905, end: 20131026
  2. JANUMET [Suspect]
     Indication: TYPE 2 DIABETES MELLITUS
     Dosage: 2TAB PER DAY
     Route: 048
     Dates: end: 20131026
  3. MARCOUMAR [Concomitant]
     Indication: PULMONARY EMBOLISM
     Route: 048
     Dates: start: 20130827
  4. TIATRAL [Concomitant]
     Indication: CORONARY ARTERY DISEASE
     Dosage: 100MG PER DAY
     Route: 048
  5. EXFORGE [Concomitant]
     Indication: CARDIAC DISORDER
     Dosage: 1TAB PER DAY
     Route: 048
  6. EZETROL [Concomitant]
     Indication: HYPERCHOLESTEROLAEMIA
     Dosage: 10MG PER DAY
     Route: 048
  7. CONCOR [Concomitant]
     Indication: CARDIAC DISORDER
     Dosage: 5MG PER DAY
     Route: 048

REACTIONS (5)
  - Renal failure acute [Recovered/Resolved]
  - Lactic acidosis [Unknown]
  - Hyperkalaemia [Unknown]
  - Decreased appetite [Unknown]
  - Thirst [Unknown]
